FAERS Safety Report 20483808 (Version 2)
Quarter: 2022Q2

REPORT INFORMATION
  Report Type: Spontaneous
  Country: IN (occurrence: IN)
  Receive Date: 20220217
  Receipt Date: 20220526
  Transmission Date: 20220721
  Serious: Yes (Hospitalization, Other)
  Sender: FDA-Public Use
  Company Number: IN-Accord-254155

PATIENT
  Age: 52 Year
  Sex: Female

DRUGS (5)
  1. CAPECITABINE [Suspect]
     Active Substance: CAPECITABINE
     Indication: Rectal adenocarcinoma
     Dosage: 2000MG/M2 PER DAY IN TWO DIVIDED DOSES FOR 14 DAY
     Dates: start: 202009
  2. OXALIPLATIN [Suspect]
     Active Substance: OXALIPLATIN
     Indication: Rectal adenocarcinoma
     Dosage: 180 MG) TO BE ADMINISTERED?ON DAY 1 AS A 3-H INFUSION, DECREASED BY 20% (104 MG/M2 I.E. 140 MG )
     Dates: start: 202009, end: 202009
  3. GRANISETRON [Concomitant]
     Active Substance: GRANISETRON
     Indication: Prophylaxis
     Dosage: 1 MG I.V. BOLUS
     Route: 042
     Dates: start: 202009, end: 2020
  4. DEXAMETHASONE [Concomitant]
     Active Substance: DEXAMETHASONE
     Indication: Prophylaxis
     Dosage: 8 MG I.V. BOLUS
     Route: 042
     Dates: start: 202009, end: 2020
  5. PANTOPRAZOLE [Concomitant]
     Active Substance: PANTOPRAZOLE
     Indication: Prophylaxis
     Dosage: 40 MG I.V. BOLUS
     Route: 042
     Dates: start: 202009, end: 2020

REACTIONS (9)
  - Dysarthria [Recovered/Resolved]
  - Pain in jaw [Recovered/Resolved]
  - Paraesthesia [Unknown]
  - Dysaesthesia pharynx [Recovered/Resolved]
  - Dizziness [Unknown]
  - Headache [Unknown]
  - Nausea [Unknown]
  - Chemical burns of eye [Unknown]
  - Dysaesthesia [Unknown]

NARRATIVE: CASE EVENT DATE: 20200101
